FAERS Safety Report 23757124 (Version 1)
Quarter: 2024Q2

REPORT INFORMATION
  Report Type: Spontaneous
  Country: FR (occurrence: FR)
  Receive Date: 20240418
  Receipt Date: 20240418
  Transmission Date: 20240716
  Serious: Yes (Hospitalization, Other)
  Sender: FDA-Public Use
  Company Number: FR-NOVPHSZ-PHHY2017FR019688

PATIENT
  Age: 51 Year
  Sex: Male

DRUGS (18)
  1. BASILIXIMAB [Suspect]
     Active Substance: BASILIXIMAB
     Indication: Renal transplant
     Route: 065
  2. MYCOPHENOLATE MOFETIL [Suspect]
     Active Substance: MYCOPHENOLATE MOFETIL
     Indication: Immunosuppression
     Dosage: 1 G, BID
     Route: 065
  3. MYCOPHENOLIC ACID [Suspect]
     Active Substance: MYCOPHENOLIC ACID
     Dosage: DAY 60 ONWARDS
     Route: 065
  4. MYCOPHENOLIC ACID [Suspect]
     Active Substance: MYCOPHENOLIC ACID
     Indication: Renal transplant
     Route: 065
  5. METHYLPREDNISOLONE [Suspect]
     Active Substance: METHYLPREDNISOLONE
     Dosage: UNK
     Route: 042
  6. METHYLPREDNISOLONE [Suspect]
     Active Substance: METHYLPREDNISOLONE
     Indication: Immunosuppression
     Route: 065
  7. PREDNISOLONE [Suspect]
     Active Substance: PREDNISOLONE
     Indication: Immunosuppression
     Dosage: 1 MG/KG, QD
     Route: 065
  8. PREDNISOLONE [Suspect]
     Active Substance: PREDNISOLONE
     Dosage: 10 MG, QD
     Route: 065
  9. TACROLIMUS [Suspect]
     Active Substance: TACROLIMUS
     Indication: Immunosuppression
     Dosage: 0.1 MG/KG, BID
     Route: 065
  10. TACROLIMUS [Suspect]
     Active Substance: TACROLIMUS
     Dosage: AT DAY 150 AND 365
     Route: 065
  11. THYMOGLOBULINE [Suspect]
     Active Substance: LAPINE T-LYMPHOCYTE IMMUNE GLOBULIN
     Indication: Immunosuppressant drug therapy
     Dosage: UNK UNK, UNKNOWN FREQUENCY, TOTAL DOSE: 300 MG
     Route: 065
  12. THYMOGLOBULINE [Suspect]
     Active Substance: LAPINE T-LYMPHOCYTE IMMUNE GLOBULIN
     Indication: Renal transplant
  13. ABACAVIR [Concomitant]
     Active Substance: ABACAVIR
     Dosage: UNK UNK, UNKNOWN FREQ.
     Route: 065
  14. ABACAVIR [Concomitant]
     Active Substance: ABACAVIR
     Indication: HIV infection
     Route: 065
  15. EFAVIRENZ [Concomitant]
     Active Substance: EFAVIRENZ
     Dosage: UNK UNK, UNKNOWN FREQ.
     Route: 065
  16. EFAVIRENZ [Concomitant]
     Active Substance: EFAVIRENZ
     Indication: HIV infection
     Route: 065
  17. LAMIVUDINE [Concomitant]
     Active Substance: LAMIVUDINE
     Indication: HIV infection
     Dosage: UNK
     Route: 065
  18. LAMIVUDINE [Concomitant]
     Active Substance: LAMIVUDINE
     Dosage: UNK UNK, UNKNOWN FREQ.
     Route: 065

REACTIONS (8)
  - Neutropenia [Unknown]
  - Viraemia [Recovered/Resolved]
  - Transplant rejection [Unknown]
  - Donor specific antibody present [Recovered/Resolved]
  - Histology abnormal [Recovered/Resolved]
  - Graft complication [Recovered/Resolved]
  - Polyomavirus-associated nephropathy [Unknown]
  - BK virus infection [Recovered/Resolved]
